FAERS Safety Report 7323081-4 (Version None)
Quarter: 2011Q1

REPORT INFORMATION
  Report Type: 
  Country: None (occurrence: None)
  Receive Date: 20110301
  Receipt Date: 20110224
  Transmission Date: 20110831
  Serious: Yes (Other)
  Sender: FDA-Public Use
  Company Number: JP-SANOFI-AVENTIS-200021137JP

PATIENT
  Age: 26 Year
  Sex: Male

DRUGS (5)
  1. PHENYTOIN [Concomitant]
  2. ALLEGRA [Suspect]
     Indication: URTICARIA
     Dosage: DOSE UNIT: 60 MG
     Route: 048
     Dates: start: 20001118, end: 20001130
  3. ALLEGRA [Suspect]
     Route: 048
     Dates: start: 20100401, end: 20100401
  4. ALLEGRA [Suspect]
     Route: 048
     Dates: start: 20080501, end: 20080501
  5. MEQUITAZINE [Concomitant]
     Indication: URTICARIA
     Route: 048
     Dates: start: 20001118, end: 20001130

REACTIONS (1)
  - LOSS OF CONSCIOUSNESS [None]
